FAERS Safety Report 20214152 (Version 1)
Quarter: 2021Q4

REPORT INFORMATION
  Report Type: Spontaneous
  Country: US (occurrence: None)
  Receive Date: 20211221
  Receipt Date: 20211221
  Transmission Date: 20220303
  Serious: No
  Sender: FDA-Public Use
  Company Number: None

PATIENT
  Age: 47 Year
  Sex: Male
  Weight: 88.65 kg

DRUGS (2)
  1. CASIRIVIMAB [Suspect]
     Active Substance: CASIRIVIMAB
     Indication: COVID-19
     Dosage: FREQUENCY : AS NEEDED;?
     Route: 058
     Dates: start: 20211217
  2. IMDEVIMAB [Suspect]
     Active Substance: IMDEVIMAB
     Indication: COVID-19
     Dosage: FREQUENCY : AS NEEDED;?
     Route: 058
     Dates: start: 20211217

REACTIONS (2)
  - Incorrect dose administered [None]
  - Product communication issue [None]

NARRATIVE: CASE EVENT DATE: 20211217
